FAERS Safety Report 5626642-3 (Version None)
Quarter: 2008Q1

REPORT INFORMATION
  Report Type: 
  Country: None (occurrence: None)
  Receive Date: 20080214
  Receipt Date: 20080206
  Transmission Date: 20080703
  Serious: Yes (Other)
  Sender: FDA-Public Use
  Company Number: HU-PFIZER INC-2008012369

PATIENT
  Sex: Male

DRUGS (3)
  1. VARENICLINE TABLETS [Suspect]
     Indication: SMOKING CESSATION THERAPY
     Route: 048
     Dates: start: 20080109, end: 20080205
  2. SERTRALINE [Concomitant]
     Route: 048
  3. RIVOTRIL [Concomitant]
     Route: 048

REACTIONS (4)
  - BIPOLAR I DISORDER [None]
  - MOOD ALTERED [None]
  - NIGHTMARE [None]
  - SUICIDAL IDEATION [None]
